FAERS Safety Report 23520560 (Version 3)
Quarter: 2024Q2

REPORT INFORMATION
  Report Type: Spontaneous
  Country: US (occurrence: US)
  Receive Date: 20240214
  Receipt Date: 20240505
  Transmission Date: 20240716
  Serious: Yes (Hospitalization, Other)
  Sender: FDA-Public Use
  Company Number: US-SA-SAC20240209001399

PATIENT
  Age: 72 Year
  Sex: Male

DRUGS (7)
  1. DUPIXENT [Suspect]
     Active Substance: DUPILUMAB
     Indication: Chronic obstructive pulmonary disease
     Dosage: 200MG ONCE
     Route: 058
     Dates: start: 202312, end: 202312
  2. DUPIXENT [Suspect]
     Active Substance: DUPILUMAB
     Indication: Nasal polyps
     Dosage: 200MG EVERY 14 DAYS
     Route: 058
     Dates: end: 2024
  3. MONTELUKAST [Concomitant]
     Active Substance: MONTELUKAST SODIUM
     Dosage: UNK
  4. CLOPIDOGREL [Concomitant]
     Active Substance: CLOPIDOGREL BISULFATE
     Dosage: UNK
  5. ASPIRIN [Concomitant]
     Active Substance: ASPIRIN
     Dosage: UNK
  6. ATORVASTATIN [Concomitant]
     Active Substance: ATORVASTATIN
     Dosage: UNK
  7. BUDESONIDE [Concomitant]
     Active Substance: BUDESONIDE
     Dosage: UNK

REACTIONS (12)
  - Cerebrovascular accident [Not Recovered/Not Resolved]
  - Deafness unilateral [Not Recovered/Not Resolved]
  - Visual impairment [Not Recovered/Not Resolved]
  - Urinary tract infection [Unknown]
  - Ear infection [Unknown]
  - Anosmia [Not Recovered/Not Resolved]
  - Condition aggravated [Not Recovered/Not Resolved]
  - Nasal congestion [Not Recovered/Not Resolved]
  - Rhinorrhoea [Not Recovered/Not Resolved]
  - Product prescribing issue [Unknown]
  - Incorrect dose administered [Unknown]
  - Product use in unapproved indication [Unknown]

NARRATIVE: CASE EVENT DATE: 20231201
